FAERS Safety Report 7942567-2 (Version None)
Quarter: 2011Q4

REPORT INFORMATION
  Report Type: 
  Country: None (occurrence: None)
  Receive Date: 20111128
  Receipt Date: 20111115
  Transmission Date: 20120403
  Serious: Yes (Other)
  Sender: FDA-Public Use
  Company Number: US-GLAXOSMITHKLINE-B0764809A

PATIENT

DRUGS (3)
  1. GEMCITABINE [Suspect]
     Indication: HODGKIN'S DISEASE
     Dosage: 1000MGM2 TWICE PER DAY
     Route: 042
  2. FLUDARABINE PHOSPHATE [Suspect]
  3. MELPHALAN HYDROCHLORIDE [Suspect]

REACTIONS (1)
  - PULMONARY TOXICITY [None]
